FAERS Safety Report 17153558 (Version 1)
Quarter: 2019Q4

REPORT INFORMATION
  Report Type: Spontaneous
  Country: US (occurrence: US)
  Receive Date: 20191213
  Receipt Date: 20191213
  Transmission Date: 20200122
  Serious: No
  Sender: FDA-Public Use
  Company Number: US-ENDO PHARMACEUTICALS INC-2018-042936

PATIENT
  Sex: Female
  Weight: 43.08 kg

DRUGS (1)
  1. TESTIM [Suspect]
     Active Substance: TESTOSTERONE
     Indication: PRODUCT USED FOR UNKNOWN INDICATION
     Dosage: UNK UNKNOWN, UNKNOWN
     Route: 065

REACTIONS (3)
  - Dyspnoea [Recovered/Resolved]
  - Malaise [Recovered/Resolved]
  - Product odour abnormal [Recovered/Resolved]

NARRATIVE: CASE EVENT DATE: 2018
